FAERS Safety Report 15248409 (Version 1)
Quarter: 2018Q3

REPORT INFORMATION
  Report Type: Spontaneous
  Country: US (occurrence: US)
  Receive Date: 20180807
  Receipt Date: 20180807
  Transmission Date: 20181010
  Serious: No
  Sender: FDA-Public Use
  Company Number: US-SA-2018SA211595

PATIENT
  Sex: Male

DRUGS (6)
  1. BUPROPIONUM [Concomitant]
     Active Substance: BUPROPION
     Dosage: 150 MG
  2. VITAMIN B12 AAA [Concomitant]
  3. AUBAGIO [Suspect]
     Active Substance: TERIFLUNOMIDE
     Indication: MULTIPLE SCLEROSIS
     Dosage: 14 MG, QD
     Route: 048
  4. VITAMIN D [Concomitant]
     Active Substance: CHOLECALCIFEROL
     Dosage: 2000 U
  5. LOSARTAN. [Concomitant]
     Active Substance: LOSARTAN
  6. MAGNESIUM CALCIUM [Concomitant]
     Active Substance: CALCIUM CARBONATE\MAGNESIUM CARBONATE

REACTIONS (3)
  - Muscle spasms [Not Recovered/Not Resolved]
  - Plantar fasciitis [Not Recovered/Not Resolved]
  - Gait disturbance [Not Recovered/Not Resolved]
